FAERS Safety Report 4459405-5 (Version None)
Quarter: 2004Q3

REPORT INFORMATION
  Report Type: 
  Country: None (occurrence: None)
  Receive Date: 20040927
  Receipt Date: 20040917
  Transmission Date: 20050211
  Serious: Yes (Other)
  Sender: FDA-Public Use
  Company Number: US-GLAXOSMITHKLINE-A0526628A

PATIENT
  Age: 9 Year
  Sex: Female

DRUGS (2)
  1. PAXIL [Suspect]
     Indication: EATING DISORDER
     Route: 048
     Dates: start: 20020101
  2. ZOLOFT [Suspect]
     Indication: EATING DISORDER
     Dates: start: 20020101

REACTIONS (3)
  - AGGRESSION [None]
  - INTENTIONAL SELF-INJURY [None]
  - SUICIDAL IDEATION [None]
